FAERS Safety Report 21919889 (Version 1)
Quarter: 2023Q1

REPORT INFORMATION
  Report Type: Spontaneous
  Country: US (occurrence: None)
  Receive Date: 20230126
  Receipt Date: 20230126
  Transmission Date: 20230417
  Serious: No
  Sender: FDA-Public Use
  Company Number: None

PATIENT
  Age: 63 Year
  Sex: Female
  Weight: 99.34 kg

DRUGS (1)
  1. ENBREL [Suspect]
     Active Substance: ETANERCEPT
     Indication: Psoriasis
     Dosage: OTHER FREQUENCY : TWICEAWK7S - 96 HR;?
     Route: 058
     Dates: start: 202210

REACTIONS (2)
  - Nasopharyngitis [None]
  - Injection site bruising [None]
